FAERS Safety Report 9414056 (Version 1)
Quarter: 2013Q3

REPORT INFORMATION
  Report Type: Spontaneous
  Country: US (occurrence: US)
  Receive Date: 20130723
  Receipt Date: 20130723
  Transmission Date: 20140515
  Serious: No
  Sender: FDA-Public Use
  Company Number: US-009507513-1307USA008839

PATIENT
  Sex: Female

DRUGS (3)
  1. VICTRELIS [Suspect]
     Indication: HEPATITIS C
     Dosage: UNK
     Dates: start: 20130506, end: 20130711
  2. REBETRON [Suspect]
     Indication: HEPATITIS C
     Dosage: UNK
     Dates: start: 20130306, end: 20130711
  3. PEGASYS [Suspect]
     Indication: HEPATITIS C
     Dosage: UNK
     Dates: start: 20130306, end: 20130711

REACTIONS (7)
  - Viral load increased [Unknown]
  - Skin warm [Unknown]
  - Chest discomfort [Unknown]
  - White blood cell count decreased [Unknown]
  - Pruritus [Unknown]
  - Rash [Unknown]
  - Drug ineffective [Unknown]
